FAERS Safety Report 6136691-7 (Version None)
Quarter: 2009Q1

REPORT INFORMATION
  Report Type: 
  Country: None (occurrence: None)
  Receive Date: 20090330
  Receipt Date: 20090318
  Transmission Date: 20090719
  Serious: Yes (Congenital Anomaly)
  Sender: FDA-Public Use
  Company Number: PHHY2009CN09790

PATIENT
  Sex: Male
  Weight: 4.8 kg

DRUGS (1)
  1. SEBIVO [Suspect]
     Dosage: MATERNAL DOSE: 600 MG QD
     Route: 064

REACTIONS (2)
  - DRUG EXPOSURE DURING PREGNANCY [None]
  - TRAUMATIC HAEMATOMA [None]
